FAERS Safety Report 18991782 (Version 1)
Quarter: 2021Q1

REPORT INFORMATION
  Report Type: Spontaneous
  Country: US (occurrence: US)
  Receive Date: 20210310
  Receipt Date: 20210310
  Transmission Date: 20210420
  Serious: No
  Sender: FDA-Public Use
  Company Number: US-PERRIGO-20US017138

PATIENT
  Age: 56 Year
  Sex: Female
  Weight: 70.3 kg

DRUGS (2)
  1. ALBUTEROL SULFATE. [Suspect]
     Active Substance: ALBUTEROL SULFATE
     Indication: ASTHMA
     Dosage: UNKNOWN, SINGLE
     Route: 055
     Dates: start: 20201125, end: 20201125
  2. ALBUTEROL SULFATE. [Suspect]
     Active Substance: ALBUTEROL SULFATE
     Indication: DYSPNOEA
     Dosage: UNKNOWN, SINGLE
     Route: 055
     Dates: start: 202005, end: 202005

REACTIONS (5)
  - Device delivery system issue [Not Recovered/Not Resolved]
  - Underdose [Recovered/Resolved]
  - Throat irritation [Recovered/Resolved]
  - Accidental exposure to product [Recovered/Resolved]
  - Expired product administered [Recovered/Resolved]

NARRATIVE: CASE EVENT DATE: 202005
